FAERS Safety Report 14758217 (Version 1)
Quarter: 2018Q2

REPORT INFORMATION
  Report Type: Spontaneous
  Country: US (occurrence: US)
  Receive Date: 20180409
  Receipt Date: 20180409
  Transmission Date: 20180711
  Serious: Yes (Other)
  Sender: FDA-Public Use
  Company Number: None

PATIENT
  Age: 98 Year
  Sex: Female
  Weight: 95.25 kg

DRUGS (1)
  1. LIDODERM [Suspect]
     Active Substance: LIDOCAINE
     Indication: PAIN MANAGEMENT
     Dates: start: 20180116

REACTIONS (4)
  - Nightmare [None]
  - Poor quality sleep [None]
  - Condition aggravated [None]
  - Disorientation [None]

NARRATIVE: CASE EVENT DATE: 20180116
